FAERS Safety Report 24787504 (Version 1)
Quarter: 2024Q4

REPORT INFORMATION
  Report Type: Spontaneous
  Country: US (occurrence: US)
  Receive Date: 20241230
  Receipt Date: 20241230
  Transmission Date: 20250115
  Serious: Yes (Life-Threatening, Hospitalization, Other)
  Sender: AUROBINDO
  Company Number: US-MLMSERVICE-20241210-PI285888-00200-1

PATIENT
  Age: 84 Year
  Sex: Female

DRUGS (2)
  1. LEVOTHYROXINE SODIUM [Suspect]
     Active Substance: LEVOTHYROXINE SODIUM
     Indication: Decompensated hypothyroidism
     Dosage: 200 MICROGRAM, 1 DOSE (100 MICROGRAM) AND RECEIVED ADDITIONAL DOSE WITHIN FEW HOURS (100 MICROGRAM)
     Route: 065
  2. AMIODARONE [Concomitant]
     Active Substance: AMIODARONE
     Indication: Atrial fibrillation
     Dosage: UNK
     Route: 065

REACTIONS (3)
  - Stress cardiomyopathy [Recovering/Resolving]
  - Condition aggravated [Recovering/Resolving]
  - Shock [Recovering/Resolving]
